FAERS Safety Report 12941422 (Version 1)
Quarter: 2016Q4

REPORT INFORMATION
  Report Type: Spontaneous
  Country: US (occurrence: US)
  Receive Date: 20161115
  Receipt Date: 20161115
  Transmission Date: 20170207
  Serious: Yes (Hospitalization)
  Sender: FDA-Public Use
  Company Number: None

PATIENT
  Age: 74 Year
  Sex: Female
  Weight: 73.4 kg

DRUGS (12)
  1. IBUTILIDE [Suspect]
     Active Substance: IBUTILIDE
     Indication: CATHETER REMOVAL
  2. LASIX [Suspect]
     Active Substance: FUROSEMIDE
  3. LIPITOR [Concomitant]
     Active Substance: ATORVASTATIN CALCIUM
  4. ADVIL [Concomitant]
     Active Substance: IBUPROFEN
  5. ASA [Concomitant]
     Active Substance: ASPIRIN
  6. VITD [Concomitant]
  7. PROZAC [Concomitant]
     Active Substance: FLUOXETINE HYDROCHLORIDE
  8. LANTUS [Concomitant]
     Active Substance: INSULIN GLARGINE
  9. COZAAR [Concomitant]
     Active Substance: LOSARTAN POTASSIUM
  10. VITAMIN B12 [Concomitant]
     Active Substance: CYANOCOBALAMIN
  11. SYNTHROID [Concomitant]
     Active Substance: LEVOTHYROXINE SODIUM
  12. METFORMIN [Concomitant]
     Active Substance: METFORMIN HYDROCHLORIDE

REACTIONS (2)
  - Torsade de pointes [None]
  - Nodal arrhythmia [None]

NARRATIVE: CASE EVENT DATE: 20150611
